FAERS Safety Report 20393907 (Version 3)
Quarter: 2022Q2

REPORT INFORMATION
  Report Type: Spontaneous
  Country: ES (occurrence: ES)
  Receive Date: 20220129
  Receipt Date: 20220622
  Transmission Date: 20220721
  Serious: Yes (Hospitalization, Other)
  Sender: FDA-Public Use
  Company Number: ES-AUROBINDO-AUR-APL-2022-001598

PATIENT
  Age: 64 Year
  Sex: Male

DRUGS (17)
  1. ERTAPENEM [Suspect]
     Active Substance: ERTAPENEM
     Indication: Prostatitis
     Dosage: 1 GRAM, ONCE A DAY
     Route: 042
     Dates: start: 202012
  2. ACYCLOVIR [Concomitant]
     Active Substance: ACYCLOVIR
     Indication: Product used for unknown indication
     Dosage: 800 MILLIGRAM, ONCE A DAY
     Route: 048
  3. ARIPIPRAZOLE [Concomitant]
     Active Substance: ARIPIPRAZOLE
     Indication: Product used for unknown indication
     Dosage: 5 MILLIGRAM, ONCE A DAY
     Route: 048
  4. COTRIMOXAZOLE [Concomitant]
     Active Substance: SULFAMETHOXAZOLE\TRIMETHOPRIM
     Indication: Product used for unknown indication
     Dosage: 960 MILLIGRAM (THRICE WEEKLY)
     Route: 048
  5. DULOXETINE [Concomitant]
     Active Substance: DULOXETINE
     Indication: Product used for unknown indication
     Dosage: 90 MILLIGRAM, ONCE A DAY
     Route: 048
  6. EPOETIN BETA [Concomitant]
     Active Substance: ERYTHROPOIETIN
     Indication: Product used for unknown indication
     Dosage: 1000 UI (TWICE WEEKLY)
     Route: 048
  7. ELTROMBOPAG [Concomitant]
     Active Substance: ELTROMBOPAG
     Indication: Product used for unknown indication
     Dosage: 75 MILLIGRAM, ONCE A DAY
     Route: 048
  8. FILGRASTIM [Concomitant]
     Active Substance: FILGRASTIM
     Indication: Product used for unknown indication
     Dosage: 300 MICROGRAM (TWICE WEEKLY)
     Route: 048
  9. FOLIC ACID [Concomitant]
     Active Substance: FOLIC ACID
     Indication: Product used for unknown indication
     Dosage: 5 MILLIGRAM (THRICE-WEEKLY)
     Route: 048
  10. FLUCONAZOLE [Concomitant]
     Active Substance: FLUCONAZOLE
     Indication: Product used for unknown indication
     Dosage: 200 MILLIGRAM (WEEKLY)
     Route: 048
  11. IMIPENEM [Concomitant]
     Active Substance: IMIPENEM
     Indication: Product used for unknown indication
     Dosage: UNK
     Route: 065
  12. LENALIDOMIDE [Concomitant]
     Active Substance: LENALIDOMIDE
     Indication: Product used for unknown indication
     Dosage: 20 MILLIGRAM, ONCE A DAY
     Route: 048
  13. LORMETAZEPAM [Concomitant]
     Active Substance: LORMETAZEPAM
     Indication: Product used for unknown indication
     Dosage: 1 MILLIGRAM, ONCE A DAY
     Route: 048
  14. NYSTATIN [Concomitant]
     Active Substance: NYSTATIN
     Indication: Product used for unknown indication
     Dosage: 3 TIMES A DAY (5 ML)
     Route: 048
  15. OMEPRAZOLE [Concomitant]
     Active Substance: OMEPRAZOLE
     Indication: Product used for unknown indication
     Dosage: 40 MILLIGRAM, TWO TIMES A DAY
     Route: 048
  16. PIPERACILLIN AND TAZOBACTAM [Concomitant]
     Active Substance: PIPERACILLIN SODIUM\TAZOBACTAM SODIUM
     Indication: Product used for unknown indication
     Dosage: 4 GRAM, 3 TIMES A DAY
     Route: 042
  17. QUETIAPINE [Concomitant]
     Active Substance: QUETIAPINE
     Indication: Product used for unknown indication
     Dosage: 20 MILLIGRAM, 3 TIMES A DAY
     Route: 048

REACTIONS (6)
  - Encephalopathy [Recovering/Resolving]
  - Neurotoxicity [Recovering/Resolving]
  - Gait disturbance [Recovering/Resolving]
  - Clumsiness [Recovering/Resolving]
  - Dysarthria [Recovering/Resolving]
  - Tremor [Recovering/Resolving]
